FAERS Safety Report 5271893-3 (Version None)
Quarter: 2007Q1

REPORT INFORMATION
  Report Type: 
  Country: None (occurrence: None)
  Receive Date: 20070316
  Receipt Date: 20070302
  Transmission Date: 20070707
  Serious: Yes (Hospitalization)
  Sender: FDA-Public Use
  Company Number: SPV1-2007-01203

PATIENT
  Age: 10 Year
  Sex: Female

DRUGS (1)
  1. PENTASA [Suspect]
     Indication: CROHN'S DISEASE
     Dosage: 500 MG 3XS DAILY, ORAL
     Route: 048
     Dates: start: 20061001, end: 20070221

REACTIONS (1)
  - PLEURISY [None]
